FAERS Safety Report 14984566 (Version 1)
Quarter: 2018Q2

REPORT INFORMATION
  Report Type: Spontaneous
  Country: US (occurrence: US)
  Receive Date: 20180607
  Receipt Date: 20180607
  Transmission Date: 20180711
  Serious: Yes (Other)
  Sender: FDA-Public Use
  Company Number: US-REGENERON PHARMACEUTICALS, INC.-2018-25178

PATIENT

DRUGS (2)
  1. EYLEA [Suspect]
     Active Substance: AFLIBERCEPT
     Indication: MACULAR DEGENERATION
     Dosage: UNK, BOTH EYES EVERY 4 WEEKS
     Dates: start: 2016
  2. EYLEA [Suspect]
     Active Substance: AFLIBERCEPT
     Dosage: UNK, RECENTLY BEEN GETTING INJECTIONS EVERY 3 WEEKS

REACTIONS (5)
  - Lens disorder [Unknown]
  - Nervousness [Unknown]
  - Visual field defect [Unknown]
  - Anxiety [Unknown]
  - Vitreous floaters [Unknown]
